FAERS Safety Report 21215979 (Version 1)
Quarter: 2022Q3

REPORT INFORMATION
  Report Type: Spontaneous
  Country: US (occurrence: US)
  Receive Date: 20220816
  Receipt Date: 20220816
  Transmission Date: 20221026
  Serious: Yes (Other)
  Sender: FDA-Public Use
  Company Number: US-NOVARTISPH-NVSC2022US183990

PATIENT
  Age: 78 Year
  Sex: Male

DRUGS (6)
  1. CARBOPLATIN [Suspect]
     Active Substance: CARBOPLATIN
     Indication: Lung squamous cell carcinoma stage III
     Dosage: UNK, QW (AUC 2)
     Route: 065
  2. CARBOPLATIN [Suspect]
     Active Substance: CARBOPLATIN
     Dosage: UNK (AUC 5)
     Route: 065
  3. PACLITAXEL [Suspect]
     Active Substance: PACLITAXEL
     Indication: Lung squamous cell carcinoma stage III
     Dosage: 45 MG/M2
     Route: 065
  4. PACLITAXEL [Suspect]
     Active Substance: PACLITAXEL
     Dosage: 175 MG/M2
     Route: 065
  5. PEMBROLIZUMAB [Suspect]
     Active Substance: PEMBROLIZUMAB
     Indication: Lung squamous cell carcinoma stage III
     Dosage: 200 MG
     Route: 065
  6. DURVALUMAB [Concomitant]
     Active Substance: DURVALUMAB
     Indication: Lung squamous cell carcinoma stage III
     Dosage: 1500 MG
     Route: 065

REACTIONS (4)
  - Lung squamous cell carcinoma stage III [Unknown]
  - Malignant neoplasm progression [Unknown]
  - Oesophagitis [Unknown]
  - Product use in unapproved indication [Unknown]
